FAERS Safety Report 7406822-7 (Version None)
Quarter: 2011Q2

REPORT INFORMATION
  Report Type: 
  Country: None (occurrence: None)
  Receive Date: 20110411
  Receipt Date: 20110404
  Transmission Date: 20111010
  Serious: Yes (Hospitalization, Other)
  Sender: FDA-Public Use
  Company Number: FR-PFIZER INC-2011073644

PATIENT
  Age: 90 Year
  Sex: Male

DRUGS (13)
  1. SOLU-MEDROL [Suspect]
     Dosage: 2 DF, 1X/DAY
     Route: 042
     Dates: start: 20101223, end: 20101231
  2. CEFTRIAXONE SODIUM [Suspect]
     Dosage: 1 DF, 1X/DAY
     Route: 042
     Dates: start: 20101220, end: 20101222
  3. HALDOL [Suspect]
     Dosage: 1 DF, 1X/DAY
     Route: 058
     Dates: start: 20101221, end: 20101231
  4. COVERSYL [Concomitant]
     Indication: HYPERTENSION
     Dosage: 2.5 MG, 2X/DAY
     Route: 048
  5. TAVANIC [Suspect]
     Dosage: 500 MG, 1X/DAY
     Route: 048
     Dates: start: 20101220, end: 20101224
  6. VENTOLIN [Concomitant]
     Indication: CHRONIC OBSTRUCTIVE PULMONARY DISEASE
     Dosage: 100 UG, 4X/DAY
     Route: 055
  7. AMIODARONE [Concomitant]
     Indication: ATRIAL FIBRILLATION
     Dosage: 200 MG, UNK
     Route: 048
     Dates: end: 20101221
  8. IPRATROPIUM [Suspect]
     Dosage: 1 DF, 4X/DAY
     Route: 055
     Dates: start: 20101220, end: 20101231
  9. FORTUM [Suspect]
     Dosage: 2 G, 3X/DAY
     Route: 042
     Dates: start: 20101222, end: 20101231
  10. BUDESONIDE [Suspect]
     Dosage: 1 DF, 4X/DAY
     Route: 055
     Dates: start: 20101220, end: 20101231
  11. ELISOR [Concomitant]
     Dosage: 20 MG, 1X/DAY
     Route: 048
  12. PERMIXON [Concomitant]
     Dosage: 1 DF, 2X/DAY
     Route: 048
  13. IKOREL [Concomitant]
     Dosage: 20 MG, 2X/DAY
     Route: 048

REACTIONS (7)
  - INTERSTITIAL LUNG DISEASE [None]
  - DYSPNOEA [None]
  - PULMONARY FIBROSIS [None]
  - ABNORMAL BEHAVIOUR [None]
  - CONFUSIONAL STATE [None]
  - BRONCHOPNEUMONIA [None]
  - HYPOXIA [None]
